FAERS Safety Report 9516408 (Version 3)
Quarter: 2013Q4

REPORT INFORMATION
  Report Type: Report from Study
  Country: US (occurrence: US)
  Receive Date: 20130911
  Receipt Date: 20131108
  Transmission Date: 20140711
  Serious: Yes (Hospitalization)
  Sender: FDA-Public Use
  Company Number: US-ACTELION-A-NJ2013-88151

PATIENT
  Age: 68 Year
  Sex: Female

DRUGS (2)
  1. TRACLEER [Suspect]
     Indication: PULMONARY ARTERIAL HYPERTENSION
     Dosage: UNK
     Route: 048
     Dates: start: 20090427
  2. COUMADIN [Concomitant]

REACTIONS (4)
  - Atrial fibrillation [Unknown]
  - Mitral valve replacement [Recovering/Resolving]
  - Mitral valve incompetence [Unknown]
  - Condition aggravated [Unknown]
